FAERS Safety Report 22349270 (Version 1)
Quarter: 2023Q2

REPORT INFORMATION
  Report Type: Spontaneous
  Country: GB (occurrence: GB)
  Receive Date: 20230522
  Receipt Date: 20230522
  Transmission Date: 20230721
  Serious: Yes (Disabling, Other)
  Sender: FDA-Public Use
  Company Number: None

PATIENT
  Age: 78 Year
  Sex: Female

DRUGS (6)
  1. DILTIAZEM [Suspect]
     Active Substance: DILTIAZEM
     Indication: Product used for unknown indication
  2. CARVEDILOL [Suspect]
     Active Substance: CARVEDILOL
     Indication: Product used for unknown indication
  3. RIVAROXABAN [Suspect]
     Active Substance: RIVAROXABAN
     Indication: Product used for unknown indication
  4. PERINDOPRIL [Suspect]
     Active Substance: PERINDOPRIL
     Indication: Product used for unknown indication
  5. ASPIRIN [Concomitant]
     Active Substance: ASPIRIN
  6. AMIODARONE [Concomitant]
     Active Substance: AMIODARONE
     Dosage: FIRST WEEK: 3 TIMES DAILY 8AM/2PM/8PM WITH FOOD SECOND WEEK 2: 8AM/8PM THIRD WEEK 1: 8PM
     Dates: start: 20220217, end: 20220325

REACTIONS (25)
  - Oedema [Unknown]
  - Malaise [Unknown]
  - Arthralgia [Unknown]
  - Pain [Unknown]
  - Asthenia [Unknown]
  - Limb discomfort [Unknown]
  - Erythema [Unknown]
  - Vision blurred [Unknown]
  - Disturbance in attention [Unknown]
  - Joint swelling [Unknown]
  - Hyperhidrosis [Unknown]
  - Neck pain [Unknown]
  - Anhedonia [Unknown]
  - Nasal congestion [Unknown]
  - Fatigue [Unknown]
  - Parotid gland enlargement [Unknown]
  - Pollakiuria [Unknown]
  - Decreased interest [Unknown]
  - Heart rate irregular [Unknown]
  - Back pain [Unknown]
  - Eye pain [Unknown]
  - Hypoacusis [Unknown]
  - Ear discomfort [Unknown]
  - Tremor [Unknown]
  - Rhinorrhoea [Unknown]
